FAERS Safety Report 4535777-8 (Version None)
Quarter: 2004Q4

REPORT INFORMATION
  Report Type: 
  Country: None (occurrence: None)
  Receive Date: 20041223
  Receipt Date: 20040304
  Transmission Date: 20050328
  Serious: No
  Sender: FDA-Public Use
  Company Number: US-GLAXOSMITHKLINE-A0501319A

PATIENT
  Sex: Female

DRUGS (1)
  1. FLONASE [Suspect]
     Indication: EAR CONGESTION
     Route: 045

REACTIONS (3)
  - GLOSSITIS [None]
  - GLOSSODYNIA [None]
  - HYPOAESTHESIA ORAL [None]
